FAERS Safety Report 15857858 (Version 1)
Quarter: 2019Q1

REPORT INFORMATION
  Report Type: Spontaneous
  Country: US (occurrence: US)
  Receive Date: 20190123
  Receipt Date: 20190123
  Transmission Date: 20190417
  Serious: No
  Sender: FDA-Public Use
  Company Number: None

PATIENT
  Age: 51 Year
  Sex: Male
  Weight: 97.65 kg

DRUGS (2)
  1. NIGHT TIME [Suspect]
     Active Substance: ACETAMINOPHEN\DEXTROMETHORPHAN HYDROBROMIDE\DOXYLAMINE SUCCINATE
     Indication: OROPHARYNGEAL PAIN
     Dosage: ?          QUANTITY:1 30ML;?
     Route: 048
     Dates: start: 20190122, end: 20190122
  2. NIGHT TIME [Suspect]
     Active Substance: ACETAMINOPHEN\DEXTROMETHORPHAN HYDROBROMIDE\DOXYLAMINE SUCCINATE
     Indication: PULMONARY CONGESTION
     Dosage: ?          QUANTITY:1 30ML;?
     Route: 048
     Dates: start: 20190122, end: 20190122

REACTIONS (4)
  - Throat tightness [None]
  - Restlessness [None]
  - Dyspnoea [None]
  - Palpitations [None]

NARRATIVE: CASE EVENT DATE: 20190122
